FAERS Safety Report 6997407-5 (Version None)
Quarter: 2010Q3

REPORT INFORMATION
  Report Type: 
  Country: None (occurrence: None)
  Receive Date: 20100918
  Receipt Date: 20091015
  Transmission Date: 20110219
  Serious: No
  Sender: FDA-Public Use
  Company Number: US-WYE-H11608409

PATIENT
  Sex: Female

DRUGS (3)
  1. EFFEXOR XR [Suspect]
     Indication: DEPRESSION
     Route: 048
     Dates: start: 20080917, end: 20091012
  2. PANTOPRAZOLE [Concomitant]
     Dosage: UNKNOWN
  3. ELETRIPTAN HYDROBROMIDE [Concomitant]
     Dosage: UNKNOWN

REACTIONS (4)
  - DIZZINESS [None]
  - DRUG WITHDRAWAL SYNDROME [None]
  - DYSPNOEA [None]
  - SYNCOPE [None]
